FAERS Safety Report 8932608 (Version 1)
Quarter: 2012Q4

REPORT INFORMATION
  Report Type: 
  Country: US (occurrence: US)
  Receive Date: 20121128
  Receipt Date: 20121128
  Transmission Date: 20130627
  Serious: Yes (Congenital Anomaly)
  Sender: FDA-Public Use
  Company Number: US-FRI-1000040583

PATIENT
  Age: 0 Year
  Sex: Female

DRUGS (2)
  1. CELEXA [Suspect]
     Indication: DEPRESSION
     Route: 064
  2. CELEXA [Suspect]
     Indication: ANXIETY

REACTIONS (1)
  - Craniosynostosis [Unknown]
